FAERS Safety Report 13329915 (Version 1)
Quarter: 2017Q1

REPORT INFORMATION
  Report Type: Spontaneous
  Country: US (occurrence: US)
  Receive Date: 20170313
  Receipt Date: 20170313
  Transmission Date: 20170428
  Serious: No
  Sender: FDA-Public Use
  Company Number: US-BAYER-2017-047484

PATIENT
  Sex: Female
  Weight: 64 kg

DRUGS (3)
  1. COQ10 [Concomitant]
     Active Substance: UBIDECARENONE
  2. MIRALAX [Suspect]
     Active Substance: POLYETHYLENE GLYCOL 3350
     Dosage: 17G DAILY WITH 8OZ OF WATER
     Route: 048
     Dates: start: 20170307, end: 20170310
  3. BAYER ASPIRIN [Suspect]
     Active Substance: ASPIRIN
     Dosage: UNK
     Route: 065

REACTIONS (6)
  - Throat irritation [None]
  - Nausea [Unknown]
  - Product use issue [Unknown]
  - Vomiting [Unknown]
  - Product use issue [Unknown]
  - Drug hypersensitivity [Unknown]

NARRATIVE: CASE EVENT DATE: 20170306
